FAERS Safety Report 23974829 (Version 1)
Quarter: 2024Q2

REPORT INFORMATION
  Report Type: Spontaneous
  Country: US (occurrence: US)
  Receive Date: 20240614
  Receipt Date: 20240614
  Transmission Date: 20240715
  Serious: No
  Sender: FDA-Public Use
  Company Number: US-GE HEALTHCARE-2024CSU003376

PATIENT
  Age: 82 Year
  Sex: Male

DRUGS (1)
  1. VIZAMYL [Suspect]
     Active Substance: FLUTEMETAMOL F-18
     Indication: Diagnostic procedure
     Dosage: 170.2 MBQ, TOTAL
     Route: 065
     Dates: start: 20240402, end: 20240402

REACTIONS (7)
  - Liquid product physical issue [Recovered/Resolved]
  - Back pain [Recovered/Resolved]
  - Staring [Recovered/Resolved]
  - Cold sweat [Recovered/Resolved]
  - Somnolence [Not Recovered/Not Resolved]
  - Lethargy [Not Recovered/Not Resolved]
  - Dizziness [Recovered/Resolved]

NARRATIVE: CASE EVENT DATE: 20240402
